FAERS Safety Report 25768366 (Version 1)
Quarter: 2025Q3

REPORT INFORMATION
  Report Type: Spontaneous
  Country: US (occurrence: US)
  Receive Date: 20250905
  Receipt Date: 20250905
  Transmission Date: 20251020
  Serious: No
  Sender: DOMPE FARMACEUTICI
  Company Number: US-FARMAPROD-202506-2088

PATIENT
  Sex: Female
  Weight: 129 kg

DRUGS (16)
  1. OXERVATE [Suspect]
     Active Substance: CENEGERMIN-BKBJ
     Indication: Neurotrophic keratopathy
     Route: 047
     Dates: start: 20250605
  2. TIMOLOL [Concomitant]
     Active Substance: TIMOLOL
  3. ASPIRIN [Concomitant]
     Active Substance: ASPIRIN
  4. MOUNJARO [Concomitant]
     Active Substance: TIRZEPATIDE
  5. ZALEPLON [Concomitant]
     Active Substance: ZALEPLON
  6. VEVYE [Concomitant]
     Active Substance: CYCLOSPORINE
  7. ROSUVASTATIN CALCIUM [Concomitant]
     Active Substance: ROSUVASTATIN CALCIUM
  8. CICLOPIROX [Concomitant]
     Active Substance: CICLOPIROX
  9. HYDROCHLOROTHIAZIDE [Concomitant]
     Active Substance: HYDROCHLOROTHIAZIDE
  10. TRIAMCINOLONE ACETONIDE [Concomitant]
     Active Substance: TRIAMCINOLONE ACETONIDE
  11. PRAMIPEXOLE DIHYDROCHLORIDE [Concomitant]
     Active Substance: PRAMIPEXOLE DIHYDROCHLORIDE
  12. CLONAZEPAM [Concomitant]
     Active Substance: CLONAZEPAM
  13. LEVOTHYROXINE SODIUM [Concomitant]
     Active Substance: LEVOTHYROXINE SODIUM
  14. DOXEPIN HYDROCHLORIDE [Concomitant]
     Active Substance: DOXEPIN HYDROCHLORIDE
  15. VALSARTAN [Concomitant]
     Active Substance: VALSARTAN
  16. TRAVOPROST [Concomitant]
     Active Substance: TRAVOPROST

REACTIONS (3)
  - Eyelid pain [Unknown]
  - Eye discharge [Unknown]
  - Eyelid margin crusting [Unknown]
